FAERS Safety Report 18770501 (Version 1)
Quarter: 2021Q1

REPORT INFORMATION
  Report Type: Spontaneous
  Country: GB (occurrence: GB)
  Receive Date: 20210122
  Receipt Date: 20210122
  Transmission Date: 20210419
  Serious: Yes (Other)
  Sender: FDA-Public Use
  Company Number: GB-AUROBINDO-AUR-APL-2020-058634

PATIENT
  Age: 68 Year
  Sex: Male

DRUGS (3)
  1. AMLODIPINE TABLETS 5MG [Suspect]
     Active Substance: AMLODIPINE BESYLATE
     Indication: HYPERTENSION
     Dosage: UNK
     Route: 065
     Dates: start: 2010
  2. AMLODIPINE TABLETS 5MG [Suspect]
     Active Substance: AMLODIPINE BESYLATE
     Dosage: 5 MILLIGRAM, ONCE A DAY
     Route: 065
  3. CANDESARTAN. [Suspect]
     Active Substance: CANDESARTAN
     Indication: BLOOD PRESSURE MEASUREMENT
     Dosage: 8 MILLIGRAM
     Route: 065
     Dates: start: 2010

REACTIONS (1)
  - Blood pressure increased [Unknown]
